FAERS Safety Report 15165241 (Version 1)
Quarter: 2018Q3

REPORT INFORMATION
  Report Type: Report from Study
  Country: US (occurrence: US)
  Receive Date: 20180719
  Receipt Date: 20180719
  Transmission Date: 20181010
  Serious: Yes (Other)
  Sender: FDA-Public Use
  Company Number: US-PFIZER INC-2018290957

PATIENT

DRUGS (1)
  1. VANCOMYCIN HCL [Suspect]
     Active Substance: VANCOMYCIN HYDROCHLORIDE
     Indication: STAPHYLOCOCCAL INFECTION
     Dosage: 60 MG/KG, DAILY (IN DIVIDED DOSES EVERY 6 HOURS)

REACTIONS (3)
  - Drug level below therapeutic [Unknown]
  - Treatment failure [Unknown]
  - Wound infection staphylococcal [Unknown]
